APPROVED DRUG PRODUCT: TUSSIGON
Active Ingredient: HOMATROPINE METHYLBROMIDE; HYDROCODONE BITARTRATE
Strength: 1.5MG;5MG
Dosage Form/Route: TABLET;ORAL
Application: A088508 | Product #001
Applicant: KING PHARMACEUTICALS RESEARCH AND DEVELOPMENT LLC
Approved: Jul 30, 1985 | RLD: No | RS: No | Type: DISCN